FAERS Safety Report 17170832 (Version 1)
Quarter: 2019Q4

REPORT INFORMATION
  Report Type: Spontaneous
  Country: NL (occurrence: NL)
  Receive Date: 20191218
  Receipt Date: 20191218
  Transmission Date: 20200122
  Serious: Yes (Hospitalization)
  Sender: FDA-Public Use
  Company Number: NL-ASTRAZENECA-2019SF80679

PATIENT

DRUGS (2)
  1. FASENRA [Suspect]
     Active Substance: BENRALIZUMAB
     Indication: ASTHMA
     Route: 058
     Dates: start: 20191210, end: 20191211
  2. FASENRA [Suspect]
     Active Substance: BENRALIZUMAB
     Indication: TYPE 1 DIABETES MELLITUS
     Route: 058
     Dates: start: 20191210, end: 20191211

REACTIONS (3)
  - Blood glucose abnormal [Unknown]
  - Off label use [Unknown]
  - Product use in unapproved indication [Unknown]
